FAERS Safety Report 8856726 (Version 1)
Quarter: 2012Q4

REPORT INFORMATION
  Report Type: 
  Country: US (occurrence: US)
  Receive Date: 20121023
  Receipt Date: 20121023
  Transmission Date: 20130627
  Serious: No
  Sender: FDA-Public Use
  Company Number: US-AMGEN-USASP2012056065

PATIENT
  Age: 64 Year
  Sex: Female

DRUGS (14)
  1. ENBREL [Suspect]
     Indication: PRODUCT USED FOR UNKNOWN INDICATION
     Dosage: 50 mg, qwk
     Route: 058
  2. METHOTREXATE [Concomitant]
     Dosage: 2.5 mg, UNK
  3. MEDROL                             /00049601/ [Concomitant]
     Dosage: 8 mg, UNK
  4. OXYCODONE [Concomitant]
     Dosage: 5 mg, UNK
  5. OXYCONTIN [Concomitant]
     Dosage: 10 mg, UNK
  6. FOLIC ACID [Concomitant]
     Dosage: 1 mg, UNK
  7. PRILOSEC                           /00661201/ [Concomitant]
     Dosage: 20 mg, UNK
  8. MULTIVITAMIN                       /00097801/ [Concomitant]
     Dosage: UNK
  9. MAGNESIUM OXIDE [Concomitant]
     Dosage: 400 mg, UNK
  10. ISOSORB MONO [Concomitant]
  11. CARAFATE [Concomitant]
     Dosage: 1 mg, UNK
  12. PLETAL [Concomitant]
     Dosage: 100 mg, UNK
  13. VITAMIN D                          /00318501/ [Concomitant]
     Dosage: 50000 UNT
  14. CALCIUM [Concomitant]
     Dosage: 500 UNK, UNK

REACTIONS (1)
  - Infected cyst [Unknown]
